FAERS Safety Report 4993943-1 (Version None)
Quarter: 2006Q2

REPORT INFORMATION
  Report Type: 
  Country: None (occurrence: None)
  Receive Date: 20060505
  Receipt Date: 20060427
  Transmission Date: 20061013
  Serious: Yes (Other)
  Sender: FDA-Public Use
  Company Number: CA-GLAXOSMITHKLINE-A0603965A

PATIENT
  Age: 72 Year
  Sex: Female
  Weight: 62.7 kg

DRUGS (16)
  1. AVANDIA [Suspect]
     Dosage: 4MG PER DAY
     Route: 048
     Dates: start: 20000830, end: 20051025
  2. METFORMIN [Concomitant]
     Dosage: 1000MG TWICE PER DAY
  3. GLYBURIDE [Concomitant]
     Dosage: 5MG PER DAY
  4. ASPIRIN [Concomitant]
     Dosage: 81MG PER DAY
  5. PLAVIX [Concomitant]
     Dosage: 75MG PER DAY
  6. METOPROLOL SUCCINATE [Concomitant]
     Dosage: 50MG TWICE PER DAY
  7. ALTACE [Concomitant]
     Dosage: 10MG PER DAY
  8. TRAZODONE HCL [Concomitant]
     Dosage: 100MG AT NIGHT
  9. INDAPAMIDE [Concomitant]
     Dosage: 1.25MG PER DAY
  10. LIPITOR [Concomitant]
     Dosage: 20MG PER DAY
  11. LOSEC [Concomitant]
     Dosage: 20MG PER DAY
  12. METOCLOPRAMIDE [Concomitant]
     Dosage: 1TAB TWICE PER DAY
  13. NITROLINGUAL [Concomitant]
     Indication: CHEST PAIN
  14. CALCIUM GLUCONATE [Concomitant]
     Dosage: 600MG TWICE PER DAY
  15. VITAMIN D [Concomitant]
     Dosage: 400IU TWICE PER DAY
  16. ALTACE [Concomitant]
     Dosage: 10MG PER DAY

REACTIONS (2)
  - IRON DEFICIENCY ANAEMIA [None]
  - SERUM FERRITIN DECREASED [None]
